FAERS Safety Report 10428722 (Version 1)
Quarter: 2014Q3

REPORT INFORMATION
  Report Type: Spontaneous
  Country: GB (occurrence: None)
  Receive Date: 20140902
  Receipt Date: 20140902
  Transmission Date: 20150326
  Serious: Yes (Hospitalization)
  Sender: FDA-Public Use
  Company Number: FK201403445

PATIENT
  Age: 85 Year
  Sex: Female

DRUGS (3)
  1. ASPIRIN (ACETYLSALICYLIC ACID) [Concomitant]
     Active Substance: ASPIRIN
  2. PARACETAMOL (PARACETAMOL) [Concomitant]
     Active Substance: ACETAMINOPHEN
  3. LETROZOLE (MANUFACTURER UNKNOWN) (LETROZOLE) (LETROZOLE) [Suspect]
     Active Substance: LETROZOLE
     Indication: BREAST CANCER
     Route: 048
     Dates: end: 20140719

REACTIONS (5)
  - Bile duct stone [None]
  - Liver function test abnormal [None]
  - Pneumobilia [None]
  - Hepatotoxicity [None]
  - Jaundice [None]
